FAERS Safety Report 13258946 (Version 2)
Quarter: 2017Q2

REPORT INFORMATION
  Report Type: Spontaneous
  Country: US (occurrence: US)
  Receive Date: 20170222
  Receipt Date: 20170413
  Transmission Date: 20170830
  Serious: Yes (Hospitalization, Other)
  Sender: FDA-Public Use
  Company Number: US-JNJFOC-20170215798

PATIENT
  Age: 56 Year
  Sex: Female
  Weight: 71.22 kg

DRUGS (2)
  1. INVEGA [Suspect]
     Active Substance: PALIPERIDONE
     Indication: SCHIZOAFFECTIVE DISORDER
     Route: 048
     Dates: start: 2009
  2. ZOLOFT [Concomitant]
     Active Substance: SERTRALINE HYDROCHLORIDE
     Indication: PRODUCT USED FOR UNKNOWN INDICATION
     Route: 065

REACTIONS (12)
  - Weight fluctuation [Unknown]
  - Diabetes mellitus [Unknown]
  - Schizoaffective disorder [Unknown]
  - Sepsis [Unknown]
  - Cellulitis [Unknown]
  - Hypertension [Unknown]
  - Pulmonary mass [Unknown]
  - Tachycardia [Unknown]
  - Vaginal haemorrhage [Unknown]
  - Social avoidant behaviour [Unknown]
  - Peripheral venous disease [Unknown]
  - Drug ineffective [Unknown]
